FAERS Safety Report 8972838 (Version 1)
Quarter: 2012Q4

REPORT INFORMATION
  Report Type: 
  Country: FR (occurrence: FR)
  Receive Date: 20121218
  Receipt Date: 20121218
  Transmission Date: 20130627
  Serious: Yes (Hospitalization, Other)
  Sender: FDA-Public Use
  Company Number: FR-009507513-1106FRA00024

PATIENT
  Age: 44 Year
  Sex: Female

DRUGS (6)
  1. JANUVIA [Suspect]
     Indication: TYPE 2 DIABETES MELLITUS
     Dosage: 100 mg, qd
     Route: 048
     Dates: start: 201101, end: 20110210
  2. NIZORAL [Suspect]
     Indication: HYPERADRENOCORTICISM
     Dosage: 1 DF, tid
     Route: 048
     Dates: start: 200906, end: 20110216
  3. GLICLAZIDE [Suspect]
     Dosage: 1 DF, qid
     Route: 048
     Dates: end: 20110216
  4. METFORMIN [Suspect]
     Dosage: 1 DF, tid
     Route: 048
     Dates: end: 20110216
  5. EXFORGE [Suspect]
     Dosage: 5mg-160
     Route: 048
     Dates: end: 20110216
  6. TAHOR [Suspect]
     Dosage: 40 mg, qd
     Route: 048
     Dates: start: 201101

REACTIONS (3)
  - Interstitial lung disease [Recovered/Resolved]
  - Cerebrovascular accident [Unknown]
  - Hemiplegia [Unknown]
